FAERS Safety Report 5051417-6 (Version None)
Quarter: 2006Q3

REPORT INFORMATION
  Report Type: 
  Country: None (occurrence: None)
  Receive Date: 20060714
  Receipt Date: 20060707
  Transmission Date: 20061208
  Serious: Yes (Other)
  Sender: FDA-Public Use
  Company Number: 2006SE03826

PATIENT
  Sex: Male

DRUGS (1)
  1. DIPRIVAN [Suspect]
     Indication: SEDATION

REACTIONS (3)
  - MYOCLONIC EPILEPSY [None]
  - PARALYSIS [None]
  - TRANSIENT ISCHAEMIC ATTACK [None]
